FAERS Safety Report 8202605-9 (Version None)
Quarter: 2012Q1

REPORT INFORMATION
  Report Type: 
  Country: None (occurrence: None)
  Receive Date: 20120312
  Receipt Date: 20120228
  Transmission Date: 20120608
  Serious: Yes (Death, Other)
  Sender: FDA-Public Use
  Company Number: PHHY2011JP36022

PATIENT
  Sex: Male
  Weight: 61 kg

DRUGS (6)
  1. VALSARTAN [Suspect]
     Dosage: 80 MG, QD
     Route: 048
     Dates: start: 20080303, end: 20080716
  2. VALSARTAN [Suspect]
     Dosage: 40 MG, QD
     Route: 048
     Dates: start: 20080717, end: 20090429
  3. AMLODIPINE [Concomitant]
     Indication: HYPERTENSION
     Dosage: 2.5 MG, UNK
     Route: 048
     Dates: start: 20090915
  4. VALSARTAN [Suspect]
     Indication: HYPERTENSION
     Dosage: 40 MG, QD
     Route: 048
     Dates: start: 20071116, end: 20080302
  5. VALSARTAN [Suspect]
     Dosage: 80 MG, QD
     Route: 048
     Dates: start: 20090430, end: 20091214
  6. ANPLAG [Concomitant]
     Dosage: 300 MG, UNK
     Route: 048
     Dates: start: 20090421

REACTIONS (3)
  - PERIPHERAL ARTERIAL OCCLUSIVE DISEASE [None]
  - CERVICAL SPINAL STENOSIS [None]
  - FALL [None]
